FAERS Safety Report 12478205 (Version 2)
Quarter: 2016Q2

REPORT INFORMATION
  Report Type: Spontaneous
  Country: CN (occurrence: CN)
  Receive Date: 20160617
  Receipt Date: 20160624
  Transmission Date: 20160815
  Serious: No
  Sender: FDA-Public Use
  Company Number: CN-009507513-1606CHN008589

PATIENT
  Age: 61 Year
  Sex: Male
  Weight: 90 kg

DRUGS (35)
  1. AMBROXOL HYDROCHLORIDE [Concomitant]
     Active Substance: AMBROXOL HYDROCHLORIDE
     Indication: PRODUCTIVE COUGH
     Dosage: TOTAL DAILY DOSE: 15MG, FREQUENCY: BID
     Route: 055
     Dates: start: 20150919, end: 20150921
  2. AMBROXOL HYDROCHLORIDE [Concomitant]
     Active Substance: AMBROXOL HYDROCHLORIDE
     Dosage: TOTAL DAILY DOSE 30MG, BID
     Route: 055
     Dates: start: 20150922, end: 20150923
  3. THYMALFASIN [Concomitant]
     Active Substance: THYMALFASIN
     Indication: IMMUNE ENHANCEMENT THERAPY
     Dosage: TOTAL DAILY DOSE: 1.6MG, FREQUENCY: OTHER (W2D2)
     Route: 042
     Dates: start: 20150922
  4. CALCIUM (UNSPECIFIED) (+) VITAMINS (UNSPECIFIED) [Concomitant]
     Active Substance: CALCIUM\VITAMINS
     Indication: OSTEOPOROSIS
  5. AMBROXOL HYDROCHLORIDE [Concomitant]
     Active Substance: AMBROXOL HYDROCHLORIDE
     Dosage: UNK, BID, TOTAL DAILY DOSE: 90MG
     Route: 042
     Dates: start: 20150922, end: 20150923
  6. CELEBREX [Concomitant]
     Active Substance: CELECOXIB
     Indication: ANALGESIC THERAPY
     Dosage: 200 MG, QD16
     Route: 048
     Dates: start: 20150922, end: 20150923
  7. XIAO AI PING PIAN [Concomitant]
     Indication: NEOPLASM MALIGNANT
     Dosage: 60ML, QD
     Route: 042
     Dates: start: 20150922, end: 20150923
  8. POTASSIUM CHLORIDE. [Concomitant]
     Active Substance: POTASSIUM CHLORIDE
     Indication: MINERAL SUPPLEMENTATION
     Dosage: 10 MG, QD
     Route: 042
     Dates: start: 20150922, end: 20150923
  9. ONDANSETRON [Concomitant]
     Active Substance: ONDANSETRON
     Indication: PROPHYLAXIS OF NAUSEA AND VOMITING
     Dosage: TOTAL DAILY DOSE 8MG, BID
     Route: 048
     Dates: start: 20150923, end: 20150929
  10. GUAIFENESIN. [Concomitant]
     Active Substance: GUAIFENESIN
     Indication: COUGH
     Dosage: TOTAL DAILY DOSE 30ML, TID
     Route: 048
     Dates: start: 20150917, end: 20150921
  11. CALCIUM (UNSPECIFIED) (+) VITAMINS (UNSPECIFIED) [Concomitant]
     Active Substance: CALCIUM\VITAMINS
     Indication: OSTEOPOROSIS PROPHYLAXIS
     Dosage: 600 MG, QD
     Route: 048
     Dates: start: 20150918, end: 20150921
  12. AMBROXOL HYDROCHLORIDE [Concomitant]
     Active Substance: AMBROXOL HYDROCHLORIDE
     Indication: PRODUCTIVE COUGH
     Dosage: TOTAL DAILY DOSE: 90MG, FREQUENCY: BID
     Route: 042
     Dates: start: 20150919, end: 20150921
  13. LANSOPRAZOLE. [Concomitant]
     Active Substance: LANSOPRAZOLE
     Indication: PROPHYLAXIS
     Dosage: 30 ML, QD
     Route: 042
     Dates: start: 20150922, end: 20150923
  14. METOCLOPRAMIDE HYDROCHLORIDE. [Concomitant]
     Active Substance: METOCLOPRAMIDE HYDROCHLORIDE
     Indication: ANTIEMETIC SUPPORTIVE CARE
     Dosage: 10 MG, QD
     Route: 042
     Dates: start: 20150922, end: 20150923
  15. TROPISETRON HYDROCHLORIDE [Concomitant]
     Active Substance: TROPISETRON HYDROCHLORIDE
     Indication: PROPHYLAXIS OF NAUSEA AND VOMITING
     Dosage: 5 MG, QD
     Route: 042
     Dates: start: 20150922, end: 20150923
  16. HEPARIN LOW MOLECULAR WEIGHT [Concomitant]
     Indication: ANTICOAGULANT THERAPY
     Dosage: 0.4 ML, QD
     Route: 058
     Dates: start: 20150917, end: 20150921
  17. CELEBREX [Concomitant]
     Active Substance: CELECOXIB
     Indication: ANALGESIC THERAPY
     Dosage: 200 MG, QD16
     Route: 048
     Dates: start: 20150919, end: 20150921
  18. PEMETREXED DISODIUM [Concomitant]
     Active Substance: PEMETREXED DISODIUM
     Indication: CHEMOTHERAPY
     Dosage: 1000MG, REGIMEN PP, CYCLE 1
     Route: 041
     Dates: start: 20150922, end: 20150922
  19. PYRIDOXINE [Concomitant]
     Active Substance: PYRIDOXINE
     Indication: IMMUNE ENHANCEMENT THERAPY
     Dosage: 200MG, QD
     Route: 042
     Dates: start: 20150922, end: 20150923
  20. DOMPERIDONE [Concomitant]
     Active Substance: DOMPERIDONE
     Indication: PROPHYLAXIS
     Dosage: TOTAL DAILY DOSE 30MG, TID
     Route: 048
     Dates: start: 20150922, end: 20151005
  21. DEXAMETHASONE. [Concomitant]
     Active Substance: DEXAMETHASONE
     Indication: PROPHYLAXIS OF NAUSEA AND VOMITING
     Dosage: UNK, BID, TOTAL DAILY DOSE 7.5MG
     Route: 048
     Dates: start: 20150922, end: 20150926
  22. CISPLATIN. [Concomitant]
     Active Substance: CISPLATIN
     Indication: CHEMOTHERAPY
     Dosage: 130 MG, REGIMEN: PP, CYCLE1/UNK
     Route: 041
     Dates: start: 20150922, end: 20150922
  23. ESTAZOLAM. [Concomitant]
     Active Substance: ESTAZOLAM
     Indication: ANXIETY
     Dosage: 1 MG, QN
     Route: 048
     Dates: start: 20150922, end: 20150923
  24. MYRTLE OIL [Concomitant]
     Indication: PRODUCTIVE COUGH
     Dosage: TOTAL DAILY DOSE 900MG , TID
     Route: 048
     Dates: start: 20150919, end: 20150921
  25. GUAIFENESIN. [Concomitant]
     Active Substance: GUAIFENESIN
     Indication: COUGH
     Dosage: TOTAL DAILY DOSE 30MG, TID
     Route: 048
     Dates: start: 20150922, end: 20150923
  26. HYDROTALCITE [Concomitant]
     Active Substance: HYDROTALCITE
     Indication: ACIDOSIS
     Dosage: TOTAL DAILY DOSE 1500MG, TID
     Route: 048
     Dates: start: 20150922, end: 20150923
  27. CALCIUM (UNSPECIFIED) (+) VITAMINS (UNSPECIFIED) [Concomitant]
     Active Substance: CALCIUM\VITAMINS
     Indication: OSTEOPOROSIS PROPHYLAXIS
     Dosage: 600 MG, QD
     Route: 048
     Dates: start: 20150922, end: 20150923
  28. RABEPRAZOLE SODIUM. [Concomitant]
     Active Substance: RABEPRAZOLE SODIUM
     Indication: PROPHYLAXIS
     Dosage: 10 MG, QD
     Route: 048
     Dates: start: 20150923, end: 20151007
  29. EMEND [Suspect]
     Active Substance: APREPITANT
     Indication: PROPHYLAXIS OF NAUSEA AND VOMITING
     Dosage: 125 MG, ONCE, DAY 1
     Route: 048
     Dates: start: 20150922, end: 20150922
  30. EMEND [Suspect]
     Active Substance: APREPITANT
     Dosage: 80 MG, QD, DAYS 2 AND 3
     Route: 048
     Dates: start: 20150923, end: 20150924
  31. HEPARIN LOW MOLECULAR WEIGHT [Concomitant]
     Dosage: 0.4 ML, QD
     Route: 042
     Dates: start: 20150922, end: 20151003
  32. MYRTLE OIL [Concomitant]
     Dosage: TOTAL DAILY DOSE: 900MG, TID
     Route: 048
     Dates: start: 20150922, end: 20150923
  33. ASCORBIC ACID. [Concomitant]
     Active Substance: ASCORBIC ACID
     Indication: IMMUNE ENHANCEMENT THERAPY
     Dosage: 2G, QD
     Route: 042
     Dates: start: 20150922, end: 20150923
  34. BERBAMINE DIHYDROCHLORIDE [Concomitant]
     Indication: WHITE BLOOD CELL COUNT DECREASED
     Dosage: 336 MG, QD
     Route: 048
     Dates: start: 20150923, end: 20151010
  35. DIOSMIN [Concomitant]
     Active Substance: DIOSMIN
     Indication: ANALGESIC THERAPY
     Dosage: TOTAL DAILY DOSE 1000MG, BID
     Route: 048
     Dates: start: 20150923, end: 20151008

REACTIONS (2)
  - White blood cell count decreased [Recovered/Resolved]
  - Neutrophil count decreased [Recovered/Resolved]

NARRATIVE: CASE EVENT DATE: 20151003
